FAERS Safety Report 5929387-5 (Version None)
Quarter: 2008Q4

REPORT INFORMATION
  Report Type: 
  Country: None (occurrence: None)
  Receive Date: 20081024
  Receipt Date: 20081014
  Transmission Date: 20090506
  Serious: Yes (Hospitalization)
  Sender: FDA-Public Use
  Company Number: FR-JNJFOC-20060903386

PATIENT
  Age: 73 Year
  Sex: Male

DRUGS (8)
  1. REMICADE [Suspect]
     Route: 042
  2. REMICADE [Suspect]
     Indication: CROHN'S DISEASE
     Dosage: 1ST INFUSION
     Route: 042
  3. HEMIGOXINE [Concomitant]
     Indication: ATRIAL FIBRILLATION
     Route: 065
  4. FOSAMAX [Concomitant]
     Route: 065
  5. SPECIAFOLDINE [Concomitant]
     Route: 065
  6. LASIX [Concomitant]
     Route: 065
  7. EQUANIL [Concomitant]
     Route: 065
  8. HUMALOG [Concomitant]
     Route: 065

REACTIONS (2)
  - LEFT VENTRICULAR FAILURE [None]
  - NON-OBSTRUCTIVE CARDIOMYOPATHY [None]
